FAERS Safety Report 19767062 (Version 2)
Quarter: 2022Q1

REPORT INFORMATION
  Report Type: Spontaneous
  Country: JP (occurrence: JP)
  Receive Date: 20210830
  Receipt Date: 20220308
  Transmission Date: 20220423
  Serious: Yes (Other)
  Sender: FDA-Public Use
  Company Number: JP-MLMSERVICE-20210610-2932063-1

PATIENT

DRUGS (1)
  1. PROPRANOLOL HYDROCHLORIDE [Suspect]
     Active Substance: PROPRANOLOL HYDROCHLORIDE
     Indication: Haemangioma congenital
     Dosage: LOW-DOSE PROPRANOLOL
     Route: 065

REACTIONS (3)
  - Hyperinsulinaemic hypoglycaemia [Recovered/Resolved]
  - Condition aggravated [Recovered/Resolved]
  - Hypoglycaemia [Recovered/Resolved]
